FAERS Safety Report 7539223 (Version 2)
Quarter: 2013Q4

REPORT INFORMATION
  Report Type: Spontaneous
  Country: US (occurrence: None)
  Receive Date: 20100802
  Receipt Date: 20131024
  Transmission Date: 20140711
  Serious: Yes (Other)
  Sender: FDA-Public Use
  Company Number: 2010S1002572

PATIENT
  Sex: Female

DRUGS (2)
  1. SODIUM PHOSPHATE [Suspect]
     Indication: COLONOSCOPY
     Dosage: 90 ML; TOTAL; PO
     Route: 048
     Dates: start: 20070111, end: 20070112
  2. LISINOPRIL [Concomitant]

REACTIONS (6)
  - Renal impairment [None]
  - Renal failure chronic [None]
  - Urinary tract infection [None]
  - Kidney small [None]
  - Hypertension [None]
  - Nephrocalcinosis [None]
